FAERS Safety Report 4521752-6 (Version None)
Quarter: 2004Q4

REPORT INFORMATION
  Report Type: 
  Country: None (occurrence: None)
  Receive Date: 20041206
  Receipt Date: 20041118
  Transmission Date: 20050328
  Serious: Yes (Death)
  Sender: FDA-Public Use
  Company Number: L04-USA-07403-54

PATIENT
  Age: 51 Year

DRUGS (3)
  1. DILTIAZEM [Suspect]
  2. ACETAMINOPHEN/TRAMADOL [Suspect]
  3. ETHANOL [Suspect]

REACTIONS (3)
  - ALCOHOL USE [None]
  - COMPLETED SUICIDE [None]
  - MULTIPLE DRUG OVERDOSE [None]
